FAERS Safety Report 4422222-6 (Version None)
Quarter: 2004Q3

REPORT INFORMATION
  Report Type: 
  Country: None (occurrence: None)
  Receive Date: 20040810
  Receipt Date: 20040802
  Transmission Date: 20050211
  Serious: Yes (Hospitalization)
  Sender: FDA-Public Use
  Company Number: ES-ROCHE-376196

PATIENT
  Age: 56 Year
  Sex: Female

DRUGS (5)
  1. ALL-TRANS-RETINOIC ACID [Suspect]
     Route: 048
  2. ALL-TRANS-RETINOIC ACID [Suspect]
     Dosage: FOR 15 DAYS.
     Route: 048
  3. ALL-TRANS-RETINOIC ACID [Suspect]
     Route: 048
     Dates: start: 20030415
  4. IDARUBICIN HCL [Concomitant]
     Dosage: FOUR DAYS EACH.
     Route: 042
  5. TRANSFUSION [Concomitant]

REACTIONS (4)
  - ASPERGILLOSIS [None]
  - HISTIOCYTOSIS HAEMATOPHAGIC [None]
  - PULMONARY ALVEOLAR HAEMORRHAGE [None]
  - THERAPY NON-RESPONDER [None]
